FAERS Safety Report 13667796 (Version 2)
Quarter: 2018Q1

REPORT INFORMATION
  Report Type: Spontaneous
  Country: US (occurrence: US)
  Receive Date: 20170620
  Receipt Date: 20180106
  Transmission Date: 20180508
  Serious: Yes (Life-Threatening, Hospitalization)
  Sender: FDA-Public Use
  Company Number: US-ACCORD-052574

PATIENT
  Age: 10 Day
  Sex: Male
  Weight: 3.2 kg

DRUGS (6)
  1. DEXMEDETOMIDINE. [Suspect]
     Active Substance: DEXMEDETOMIDINE
     Indication: ARRHYTHMIA SUPRAVENTRICULAR
     Dosage: STARTED 0.5 UG/KG/H, WITHOUT LOADING DOSE.?INCREASED TO 1 UG/KG/H, AND THEN TO 1.5 UG/KG/H.
  2. MAGNESIUM HYDROXIDE. [Concomitant]
     Active Substance: MAGNESIUM HYDROXIDE
     Indication: ARRHYTHMIA SUPRAVENTRICULAR
  3. EPINEPHRINE. [Concomitant]
     Active Substance: EPINEPHRINE
     Indication: ARRHYTHMIA SUPRAVENTRICULAR
     Dosage: EPINEPHRINE AT 0.07 UG/KG/MIN, INTRAVENOUS INFUSIONS
     Route: 042
  4. AMIODARONE [Suspect]
     Active Substance: AMIODARONE
     Indication: ARRHYTHMIA SUPRAVENTRICULAR
  5. MILRINONE [Concomitant]
     Active Substance: MILRINONE
     Indication: ARRHYTHMIA SUPRAVENTRICULAR
     Dosage: MILRINONE AT 0.5 UG/KG/MIN
     Route: 042
  6. NITROGLYCERIN. [Concomitant]
     Active Substance: NITROGLYCERIN
     Indication: ARRHYTHMIA SUPRAVENTRICULAR
     Dosage: NITROGLYCERIN AT 0.2 UG/KG/MIN
     Route: 042

REACTIONS (3)
  - Off label use [Unknown]
  - Cardiac arrest neonatal [Unknown]
  - Therapy non-responder [Unknown]
